FAERS Safety Report 9702772 (Version 2)
Quarter: 2013Q4

REPORT INFORMATION
  Report Type: Spontaneous
  Country: US (occurrence: US)
  Receive Date: 20131121
  Receipt Date: 20131209
  Transmission Date: 20140711
  Serious: Yes (Death)
  Sender: FDA-Public Use
  Company Number: US-GLAXOSMITHKLINE-A1049863A

PATIENT
  Age: 50 Year
  Sex: Male

DRUGS (6)
  1. VOTRIENT [Suspect]
     Indication: RENAL CELL CARCINOMA
     Dosage: 4TAB PER DAY
     Route: 048
     Dates: start: 20130923
  2. ALBUTEROL INHALER [Concomitant]
  3. FENTANYL PATCH [Concomitant]
  4. HYDROCODONE [Concomitant]
  5. LORAZEPAM [Concomitant]
  6. SYMBICORT [Concomitant]

REACTIONS (2)
  - Renal cancer metastatic [Fatal]
  - Off label use [Unknown]
